FAERS Safety Report 10606426 (Version 2)
Quarter: 2014Q4

REPORT INFORMATION
  Report Type: Spontaneous
  Country: US (occurrence: US)
  Receive Date: 20141125
  Receipt Date: 20141219
  Transmission Date: 20150529
  Serious: No
  Sender: FDA-Public Use
  Company Number: US-AMGEN INC.-USASP2014091346

PATIENT
  Age: 43 Year
  Sex: Female

DRUGS (1)
  1. ENBREL [Suspect]
     Active Substance: ETANERCEPT
     Indication: ANKYLOSING SPONDYLITIS
     Dosage: 50 MG, QWK
     Route: 065
     Dates: start: 20141106

REACTIONS (12)
  - Flushing [Recovered/Resolved]
  - Drug administration error [Recovered/Resolved]
  - Injection site reaction [Not Recovered/Not Resolved]
  - Injection site warmth [Not Recovered/Not Resolved]
  - Nasopharyngitis [Recovered/Resolved]
  - Injection site induration [Not Recovered/Not Resolved]
  - Injection site erythema [Not Recovered/Not Resolved]
  - Ear pruritus [Not Recovered/Not Resolved]
  - Rash papular [Not Recovered/Not Resolved]
  - Injection site swelling [Not Recovered/Not Resolved]
  - Injection site pain [Not Recovered/Not Resolved]
  - Throat irritation [Not Recovered/Not Resolved]

NARRATIVE: CASE EVENT DATE: 201411
